FAERS Safety Report 5318181-4 (Version None)
Quarter: 2007Q2

REPORT INFORMATION
  Report Type: 
  Country: None (occurrence: None)
  Receive Date: 20070507
  Receipt Date: 20070427
  Transmission Date: 20071010
  Serious: Yes (Hospitalization)
  Sender: FDA-Public Use
  Company Number: NL-PFIZER INC-2007013212

PATIENT
  Sex: Female

DRUGS (8)
  1. NORVASC [Suspect]
     Indication: HYPERTENSION
     Route: 048
     Dates: start: 20051101, end: 20070214
  2. LOSEC MUPS [Concomitant]
     Route: 048
  3. METOPROLOL TARTRATE [Concomitant]
     Route: 048
  4. IRBESARTAN [Concomitant]
     Route: 048
  5. IRBESARTAN [Concomitant]
  6. BUSCOPAN [Concomitant]
     Route: 048
  7. MOVICOLON [Concomitant]
     Route: 048
  8. OXAZEPAM [Concomitant]
     Route: 048

REACTIONS (7)
  - ANKLE FRACTURE [None]
  - ARRHYTHMIA [None]
  - BLOOD PRESSURE INADEQUATELY CONTROLLED [None]
  - FALL [None]
  - GASTROINTESTINAL PAIN [None]
  - NAUSEA [None]
  - PALPITATIONS [None]
